FAERS Safety Report 6904247-1 (Version None)
Quarter: 2010Q3

REPORT INFORMATION
  Report Type: 
  Country: None (occurrence: None)
  Receive Date: 20100804
  Receipt Date: 20090408
  Transmission Date: 20110219
  Serious: Yes (Other)
  Sender: FDA-Public Use
  Company Number: US-PFIZER INC-2009196060

PATIENT
  Sex: Female
  Weight: 62.142 kg

DRUGS (4)
  1. LYRICA [Suspect]
     Indication: PAIN
     Dosage: 50 MG, 2X/DAY
     Dates: start: 20090401, end: 20090408
  2. AMPICILLIN [Concomitant]
     Dosage: UNK
  3. TIZANIDINE [Concomitant]
     Dosage: UNK
  4. ALL OTHER THERAPEUTIC PRODUCTS [Concomitant]
     Dosage: UNK

REACTIONS (4)
  - GINGIVAL PAIN [None]
  - ORAL DISCOMFORT [None]
  - ORAL PAIN [None]
  - SWOLLEN TONGUE [None]
